FAERS Safety Report 17866287 (Version 3)
Quarter: 2020Q3

REPORT INFORMATION
  Report Type: Spontaneous
  Country: GB (occurrence: GB)
  Receive Date: 20200605
  Receipt Date: 20200722
  Transmission Date: 20201103
  Serious: Yes (Other)
  Sender: FDA-Public Use
  Company Number: GB-SA-2020SA143016

PATIENT

DRUGS (13)
  1. PREDNISOLONE. [Concomitant]
     Active Substance: PREDNISOLONE
     Indication: BASAL CELL CARCINOMA
     Dosage: UNK
  2. PREDNISOLONE. [Concomitant]
     Active Substance: PREDNISOLONE
     Indication: SKIN HYPERTROPHY
  3. PREDNISOLONE. [Concomitant]
     Active Substance: PREDNISOLONE
     Indication: SKIN ULCER
  4. DUPIXENT [Suspect]
     Active Substance: DUPILUMAB
     Indication: DERMATITIS ATOPIC
     Dosage: UNK
     Dates: start: 201911
  5. PREDNISOLONE. [Concomitant]
     Active Substance: PREDNISOLONE
     Indication: PYOGENIC GRANULOMA
  6. PREDNISOLONE. [Concomitant]
     Active Substance: PREDNISOLONE
     Indication: SKIN PAPILLOMA
  7. PREDNISOLONE. [Concomitant]
     Active Substance: PREDNISOLONE
     Indication: SKIN HAEMORRHAGE
  8. PREDNISOLONE. [Concomitant]
     Active Substance: PREDNISOLONE
     Indication: DERMATITIS ATOPIC
  9. PREDNISOLONE. [Concomitant]
     Active Substance: PREDNISOLONE
     Indication: SKIN DISCHARGE
  10. DUPIXENT [Suspect]
     Active Substance: DUPILUMAB
     Indication: ECZEMA
  11. PREDNISOLONE. [Concomitant]
     Active Substance: PREDNISOLONE
     Indication: SKIN LESION
  12. PREDNISOLONE. [Concomitant]
     Active Substance: PREDNISOLONE
     Indication: SQUAMOUS CELL CARCINOMA
  13. PREDNISOLONE. [Concomitant]
     Active Substance: PREDNISOLONE
     Indication: PALLOR

REACTIONS (13)
  - Skin papilloma [Unknown]
  - Skin haemorrhage [Unknown]
  - Wound infection [Recovered/Resolved]
  - Skin disorder [Unknown]
  - Skin hypertrophy [Unknown]
  - Skin discharge [Unknown]
  - Squamous cell carcinoma [Unknown]
  - Skin lesion [Unknown]
  - Skin ulcer [Unknown]
  - Pallor [Unknown]
  - Opportunistic infection [Unknown]
  - Basal cell carcinoma [Unknown]
  - Pyogenic granuloma [Unknown]

NARRATIVE: CASE EVENT DATE: 2020
